FAERS Safety Report 9377846 (Version 5)
Quarter: 2013Q4

REPORT INFORMATION
  Report Type: Report from Study
  Country: US (occurrence: US)
  Receive Date: 20130701
  Receipt Date: 20131031
  Transmission Date: 20140711
  Serious: No
  Sender: FDA-Public Use
  Company Number: US-GLAXOSMITHKLINE-A1029001A

PATIENT
  Age: 0 Day
  Sex: Female
  Weight: 3.5 kg

DRUGS (3)
  1. BENLYSTA [Suspect]
     Indication: SYSTEMIC LUPUS ERYTHEMATOSUS
     Dosage: 536MG MONTHLY
     Route: 064
     Dates: start: 20120412, end: 20120913
  2. PREDNISONE [Concomitant]
     Indication: SYSTEMIC LUPUS ERYTHEMATOSUS
     Dosage: 10MG PER DAY
     Route: 064
     Dates: start: 20120329, end: 201209
  3. NSAIDS [Concomitant]
     Indication: PRODUCT USED FOR UNKNOWN INDICATION
     Route: 064
     Dates: start: 20120501, end: 20120923

REACTIONS (2)
  - Nervous system disorder [Unknown]
  - Foetal exposure during pregnancy [Unknown]
